FAERS Safety Report 7997896-3 (Version None)
Quarter: 2011Q4

REPORT INFORMATION
  Report Type: 
  Country: None (occurrence: None)
  Receive Date: 20111221
  Receipt Date: 20110425
  Transmission Date: 20120403
  Serious: No
  Sender: FDA-Public Use
  Company Number: US-PFIZER INC-K201100494

PATIENT
  Sex: Male

DRUGS (3)
  1. CORGARD [Suspect]
     Dosage: UNK
     Route: 048
  2. CORGARD [Suspect]
     Indication: CARDIAC DISORDER
     Dosage: UNK
     Route: 050
  3. LANOXIN [Concomitant]
     Indication: CARDIAC DISORDER
     Dosage: 0.25 MG, AS NEEDED

REACTIONS (1)
  - DIZZINESS [None]
